FAERS Safety Report 6525281-X (Version None)
Quarter: 2010Q1

REPORT INFORMATION
  Report Type: 
  Country: None (occurrence: None)
  Receive Date: 20100104
  Receipt Date: 20091221
  Transmission Date: 20100710
  Serious: Yes (Hospitalization)
  Sender: FDA-Public Use
  Company Number: KR-PFIZER INC-2006044686

PATIENT
  Age: 56 Year
  Sex: Female
  Weight: 40 kg

DRUGS (11)
  1. SUNITINIB MALATE [Suspect]
     Indication: GASTROINTESTINAL STROMAL TUMOUR
     Dosage: EVERYDAY
     Route: 048
     Dates: start: 20060302
  2. MAGNESIUM OXIDE [Concomitant]
     Dosage: 1500 MG, 1X/DAY
     Route: 048
     Dates: start: 20060207
  3. ALPRAZOLAM [Concomitant]
     Dosage: 0.25 MG, 1X/DAY
     Route: 048
     Dates: start: 20060117, end: 20060301
  4. MORPHINE SULFATE [Concomitant]
     Dosage: 20 MG, 1X/DAY
     Route: 048
     Dates: start: 20060207, end: 20060301
  5. TRANEXAMIC ACID [Concomitant]
     Dosage: 750 MG, 1X/DAY
     Route: 048
     Dates: start: 20060215, end: 20060301
  6. CALCIUM POLYSTYRENE SULFONATE [Concomitant]
     Dosage: 150 G, 1X/DAY
     Route: 054
     Dates: start: 20060323, end: 20060323
  7. LACTULOSE [Concomitant]
     Dosage: 200 ML, 1X/DAY
     Route: 054
     Dates: start: 20060323, end: 20060323
  8. TRAMADOL HYDROCHLORIDE [Concomitant]
     Dosage: 200 MG, 1X/DAY
     Route: 042
     Dates: start: 20060324
  9. FUROSEMIDE [Concomitant]
     Dosage: 20 MG, 1X/DAY
     Route: 042
     Dates: start: 20060326
  10. LABETALOL HYDROCHLORIDE [Concomitant]
     Dosage: 100 MG, 1X/DAY
     Route: 042
     Dates: start: 20060327
  11. PANTOPRAZOLE [Concomitant]
     Dosage: 120 MG, 1X/DAY
     Route: 042
     Dates: start: 20060327

REACTIONS (7)
  - ASTHENIA [None]
  - AZOTAEMIA [None]
  - DECREASED APPETITE [None]
  - DEHYDRATION [None]
  - HYPERKALAEMIA [None]
  - HYPERTENSION [None]
  - RENAL FAILURE [None]
